FAERS Safety Report 5770082-3 (Version None)
Quarter: 2008Q2

REPORT INFORMATION
  Report Type: 
  Country: None (occurrence: None)
  Receive Date: 20080613
  Receipt Date: 20080418
  Transmission Date: 20081010
  Serious: No
  Sender: FDA-Public Use
  Company Number: US-ABBOTT-08P-163-0448029-00

PATIENT
  Sex: Female
  Weight: 65.376 kg

DRUGS (6)
  1. HUMIRA [Suspect]
     Indication: RHEUMATOID ARTHRITIS
     Route: 058
     Dates: start: 20071129
  2. PROPRANOLOL HYDROCHLORIDE [Concomitant]
     Indication: MITRAL VALVE PROLAPSE
     Route: 048
  3. ESOMEPRAZOLE MAGNESIUM [Concomitant]
     Indication: GASTROOESOPHAGEAL REFLUX DISEASE
     Route: 048
  4. BIRTH CONTROL PILLS [Concomitant]
     Indication: CONTRACEPTION
     Route: 048
  5. METHYLPREDNISOLONE [Concomitant]
     Indication: RHEUMATOID ARTHRITIS
     Route: 048
  6. CLINDAMYCIN [Concomitant]
     Indication: MITRAL VALVE PROLAPSE
     Dosage: 4-150MG TABLETS
     Route: 048
     Dates: start: 20080414, end: 20080414

REACTIONS (1)
  - ACCIDENTAL EXPOSURE [None]
